FAERS Safety Report 10063647 (Version 5)
Quarter: 2016Q4

REPORT INFORMATION
  Report Type: Spontaneous
  Country: US (occurrence: US)
  Receive Date: 20140407
  Receipt Date: 20161007
  Transmission Date: 20170206
  Serious: Yes (Death, Life-Threatening, Hospitalization, Disabling, Other)
  Sender: FDA-Public Use
  Company Number: US-009507513-1404USA003919

PATIENT
  Sex: Male
  Weight: 140.59 kg

DRUGS (1)
  1. JANUVIA [Suspect]
     Active Substance: SITAGLIPTIN PHOSPHATE
     Indication: TYPE 2 DIABETES MELLITUS
     Dosage: 100 MG, QD
     Route: 048
     Dates: start: 20100220, end: 20120402

REACTIONS (44)
  - Metastases to liver [Unknown]
  - Chest pain [Unknown]
  - Musculoskeletal discomfort [Unknown]
  - Headache [Unknown]
  - Intestinal stent insertion [Unknown]
  - Chronic obstructive pulmonary disease [Unknown]
  - Foot operation [Unknown]
  - Back pain [Unknown]
  - Death [Fatal]
  - Pancreatic carcinoma metastatic [Not Recovered/Not Resolved]
  - Metastases to lung [Not Recovered/Not Resolved]
  - Intestinal obstruction [Unknown]
  - Gastrooesophageal reflux disease [Unknown]
  - Muscle spasms [Unknown]
  - Anxiety [Unknown]
  - Eye pain [Unknown]
  - Nephrolithiasis [Unknown]
  - Dehydration [Unknown]
  - Surgery [Unknown]
  - Hepatic steatosis [Unknown]
  - Glaucoma [Unknown]
  - Infection [Unknown]
  - Myoclonus [Unknown]
  - Osteoarthritis [Unknown]
  - Phlebolith [Unknown]
  - Hepatic cyst [Unknown]
  - Hyperlipidaemia [Unknown]
  - Neuropathy peripheral [Unknown]
  - Diarrhoea [Unknown]
  - Bile duct stent insertion [Unknown]
  - Diabetic eye disease [Unknown]
  - Osteopenia [Unknown]
  - Surgery [Unknown]
  - Appendicectomy [Unknown]
  - Compartment syndrome [Unknown]
  - Pain [Not Recovered/Not Resolved]
  - Radiotherapy [Unknown]
  - Portal vein thrombosis [Unknown]
  - Drug ineffective [Unknown]
  - Sleep apnoea syndrome [Unknown]
  - Road traffic accident [Unknown]
  - Night sweats [Unknown]
  - Renal cyst [Unknown]
  - Hiatus hernia [Unknown]

NARRATIVE: CASE EVENT DATE: 2012
